FAERS Safety Report 8153961-1 (Version None)
Quarter: 2012Q1

REPORT INFORMATION
  Report Type: 
  Country: None (occurrence: None)
  Receive Date: 20120221
  Receipt Date: 20120221
  Transmission Date: 20120608
  Serious: No
  Sender: FDA-Public Use
  Company Number: None

PATIENT
  Age: 30 Year
  Sex: Female
  Weight: 61.234 kg

DRUGS (1)
  1. MINOCYCLINE HCL [Suspect]

REACTIONS (3)
  - VISION BLURRED [None]
  - TINNITUS [None]
  - NAUSEA [None]
